FAERS Safety Report 11081021 (Version 1)
Quarter: 2015Q2

REPORT INFORMATION
  Report Type: Spontaneous
  Country: US (occurrence: None)
  Receive Date: 20150421
  Receipt Date: 20150421
  Transmission Date: 20150821
  Serious: Yes (Life-Threatening)
  Sender: FDA-Public Use
  Company Number: UCM201502-000072

PATIENT
  Sex: Male
  Weight: 79.37 kg

DRUGS (3)
  1. LAMOTRIGINE. [Suspect]
     Active Substance: LAMOTRIGINE
     Indication: BIPOLAR DISORDER
  2. WELLBUTRIN (BUPROPION) [Concomitant]
  3. LITHIUM. [Suspect]
     Active Substance: LITHIUM
     Indication: BIPOLAR DISORDER

REACTIONS (5)
  - Alopecia [None]
  - Tremor [None]
  - Wrong technique in drug usage process [None]
  - Disturbance in sexual arousal [None]
  - Rash [None]
